FAERS Safety Report 13546117 (Version 1)
Quarter: 2017Q2

REPORT INFORMATION
  Report Type: Spontaneous
  Country: US (occurrence: US)
  Receive Date: 20170514
  Receipt Date: 20170514
  Transmission Date: 20170830
  Serious: Yes (Other)
  Sender: FDA-Public Use
  Company Number: None

PATIENT
  Age: 72 Year
  Sex: Female
  Weight: 67.5 kg

DRUGS (2)
  1. RESTASIS [Suspect]
     Active Substance: CYCLOSPORINE
     Indication: LACRIMAL DISORDER
     Dosage: ?          QUANTITY:1 DROP(S);?
     Route: 047
     Dates: start: 20170312, end: 20170318
  2. CLARITIN GENERIC [Concomitant]

REACTIONS (16)
  - Pharyngeal oedema [None]
  - Dizziness [None]
  - Mouth swelling [None]
  - Speech disorder [None]
  - Frustration tolerance decreased [None]
  - Blood pressure increased [None]
  - Facial pain [None]
  - Rhinorrhoea [None]
  - Mastication disorder [None]
  - Platelet count increased [None]
  - Headache [None]
  - Pain in jaw [None]
  - Sneezing [None]
  - Gingival pain [None]
  - Viral upper respiratory tract infection [None]
  - Swelling face [None]

NARRATIVE: CASE EVENT DATE: 20170317
